FAERS Safety Report 17460361 (Version 1)
Quarter: 2020Q1

REPORT INFORMATION
  Report Type: Spontaneous
  Country: CA (occurrence: CA)
  Receive Date: 20200225
  Receipt Date: 20200225
  Transmission Date: 20200409
  Serious: Yes (Hospitalization, Other)
  Sender: FDA-Public Use
  Company Number: CA-TEVA-2020-CA-1189656

PATIENT
  Age: 61 Year
  Sex: Male

DRUGS (12)
  1. ATIVAN [Concomitant]
     Active Substance: LORAZEPAM
  2. CARIPUL [Suspect]
     Active Substance: EPOPROSTENOL
     Indication: PRODUCT USED FOR UNKNOWN INDICATION
     Route: 065
  3. CRESTOR [Concomitant]
     Active Substance: ROSUVASTATIN CALCIUM
  4. METONIA [Concomitant]
     Active Substance: METOCLOPRAMIDE
  5. MORNIFLUMATE [Concomitant]
     Active Substance: MORNIFLUMATE
  6. SALBUTAMOL [Concomitant]
     Active Substance: ALBUTEROL
  7. SILDENAFIL CITRATE. [Suspect]
     Active Substance: SILDENAFIL CITRATE
     Indication: CONNECTIVE TISSUE DISORDER
     Route: 065
  8. ANORO ELLIPTA [Concomitant]
     Active Substance: UMECLIDINIUM BROMIDE\VILANTEROL TRIFENATATE
  9. IRON [Concomitant]
     Active Substance: IRON
  10. SILDENAFIL CITRATE. [Suspect]
     Active Substance: SILDENAFIL CITRATE
     Indication: PULMONARY ARTERIAL HYPERTENSION
     Dosage: 60 MILLIGRAM DAILY;
     Route: 048
  11. LASIX [Concomitant]
     Active Substance: FUROSEMIDE
  12. PANTOLOC [Concomitant]
     Active Substance: PANTOPRAZOLE SODIUM

REACTIONS (5)
  - Pulmonary oedema [Not Recovered/Not Resolved]
  - Heart rate increased [Not Recovered/Not Resolved]
  - Hypotension [Not Recovered/Not Resolved]
  - Pericardial effusion [Not Recovered/Not Resolved]
  - Pneumonia [Not Recovered/Not Resolved]
